FAERS Safety Report 7620619-4 (Version None)
Quarter: 2011Q3

REPORT INFORMATION
  Report Type: 
  Country: None (occurrence: None)
  Receive Date: 20110719
  Receipt Date: 20110705
  Transmission Date: 20111222
  Serious: Yes (Hospitalization, Other)
  Sender: FDA-Public Use
  Company Number: IL-SANOFI-AVENTIS-2011SA044076

PATIENT
  Age: 82 Year
  Sex: Male
  Weight: 109 kg

DRUGS (11)
  1. DOXAZOSIN MESYLATE [Concomitant]
     Route: 065
  2. WARFARIN SODIUM [Concomitant]
     Route: 065
  3. LERCANIDIPINE [Concomitant]
     Route: 065
  4. CLOPIDOGREL [Concomitant]
     Route: 065
  5. DRONEDARONE HCL [Suspect]
     Indication: ATRIAL FIBRILLATION
     Route: 048
     Dates: start: 20110109
  6. ASPIRIN [Concomitant]
     Route: 065
  7. SPIRONOLACTONE [Concomitant]
     Route: 065
  8. SIMVASTATIN [Concomitant]
     Route: 065
  9. METFORMIN HCL [Concomitant]
     Route: 065
  10. BISOPROLOL [Concomitant]
     Route: 065
  11. RAMIPRIL [Concomitant]
     Route: 065

REACTIONS (3)
  - BLOOD DISORDER [None]
  - HAEMORRHAGE [None]
  - CARDIAC FAILURE [None]
